FAERS Safety Report 19088212 (Version 1)
Quarter: 2021Q2

REPORT INFORMATION
  Report Type: Spontaneous
  Country: JP (occurrence: JP)
  Receive Date: 20210402
  Receipt Date: 20210402
  Transmission Date: 20210717
  Serious: Yes (Other)
  Sender: FDA-Public Use
  Company Number: JP-ALLERGAN-2111651US

PATIENT
  Sex: Female

DRUGS (6)
  1. MOVICOL [Suspect]
     Active Substance: POLYETHYLENE GLYCOL 3350\POTASSIUM CHLORIDE\SODIUM BICARBONATE\SODIUM CHLORIDE
     Indication: PRODUCT USED FOR UNKNOWN INDICATION
     Dosage: 1 OR 2 PACKAGES
     Route: 048
  2. MOVICOL [Suspect]
     Active Substance: POLYETHYLENE GLYCOL 3350\POTASSIUM CHLORIDE\SODIUM BICARBONATE\SODIUM CHLORIDE
     Dosage: 5 PACKAGES
     Route: 048
  3. LINACLOTIDE ? BP [Suspect]
     Active Substance: LINACLOTIDE
     Dosage: 0.75 MG EVERY 2 OR 3 DAYS
     Route: 048
     Dates: start: 20210312
  4. LINACLOTIDE ? BP [Suspect]
     Active Substance: LINACLOTIDE
     Indication: CONSTIPATION
     Dosage: 0.5 MG
     Route: 048
  5. FLUTIDE [FLUTICASONE PROPIONATE] [Concomitant]
     Active Substance: FLUTICASONE PROPIONATE
     Indication: ASTHMA
     Dosage: UNK
     Route: 048
  6. MOVICOL [Suspect]
     Active Substance: POLYETHYLENE GLYCOL 3350\POTASSIUM CHLORIDE\SODIUM BICARBONATE\SODIUM CHLORIDE
     Dosage: 6 PACKAGES
     Route: 048

REACTIONS (7)
  - Middle insomnia [Unknown]
  - Dementia [Unknown]
  - Prescribed overdose [Unknown]
  - Diarrhoea [Unknown]
  - Constipation [Unknown]
  - Therapeutic response decreased [Unknown]
  - Haemorrhoids [Unknown]

NARRATIVE: CASE EVENT DATE: 202101
